FAERS Safety Report 4373809-0 (Version None)
Quarter: 2004Q2

REPORT INFORMATION
  Report Type: 
  Country: None (occurrence: None)
  Receive Date: 20040608
  Receipt Date: 20040608
  Transmission Date: 20050107
  Serious: Yes (Hospitalization)
  Sender: FDA-Public Use
  Company Number: None

PATIENT
  Age: 39 Year
  Sex: Female

DRUGS (1)
  1. AZATHIOPRINE (GENERIC) [Suspect]
     Indication: RENAL TRANSPLANT
     Dosage: 100 MG PO QD
     Route: 048

REACTIONS (5)
  - DEPRESSION [None]
  - MOOD ALTERED [None]
  - NAUSEA [None]
  - PHARMACEUTICAL PRODUCT COMPLAINT [None]
  - VOMITING [None]
